FAERS Safety Report 10061086 (Version 2)
Quarter: 2014Q2

REPORT INFORMATION
  Report Type: Spontaneous
  Country: US (occurrence: US)
  Receive Date: 20140405
  Receipt Date: 20140405
  Transmission Date: 20141212
  Serious: Yes (Death, Disabling)
  Sender: FDA-Public Use
  Company Number: US-GE HEALTHCARE MEDICAL DIAGNOSTICS-OSCN-PR-0801S-0043

PATIENT
  Sex: Female

DRUGS (7)
  1. PROHANCE [Suspect]
     Indication: PRODUCT USED FOR UNKNOWN INDICATION
     Route: 042
     Dates: start: 20050926, end: 20050926
  2. PROHANCE [Suspect]
     Route: 042
     Dates: start: 20061027, end: 20061027
  3. PROHANCE [Suspect]
     Route: 042
     Dates: start: 20070201, end: 20070201
  4. MAGNEVIST [Suspect]
     Indication: PRODUCT USED FOR UNKNOWN INDICATION
     Route: 042
     Dates: start: 20000819, end: 20000819
  5. MAGNEVIST [Suspect]
     Route: 042
     Dates: start: 20011107, end: 20011107
  6. MAGNEVIST [Suspect]
     Route: 042
     Dates: start: 20050117, end: 20050117
  7. MAGNEVIST [Suspect]
     Route: 042
     Dates: start: 20050117, end: 20050117

REACTIONS (1)
  - Nephrogenic systemic fibrosis [Fatal]
